FAERS Safety Report 6967975-8 (Version None)
Quarter: 2010Q3

REPORT INFORMATION
  Report Type: 
  Country: None (occurrence: None)
  Receive Date: 20100907
  Receipt Date: 20100827
  Transmission Date: 20110219
  Serious: Yes (Death, Hospitalization)
  Sender: FDA-Public Use
  Company Number: A0826670A

PATIENT
  Age: 60 Year
  Sex: Female

DRUGS (4)
  1. AVANDIA [Suspect]
     Indication: DIABETES MELLITUS
     Route: 048
     Dates: end: 20070601
  2. ASPIRIN [Concomitant]
  3. CLOPIDOGREL [Concomitant]
  4. METOPROLOL TARTRATE [Concomitant]

REACTIONS (12)
  - BLOOD CREATININE INCREASED [None]
  - BUNDLE BRANCH BLOCK LEFT [None]
  - CARDIOGENIC SHOCK [None]
  - CORONARY ARTERY DISEASE [None]
  - DEATH [None]
  - LEFT VENTRICULAR DYSFUNCTION [None]
  - MYOCARDIAL INFARCTION [None]
  - PNEUMONIA [None]
  - PULMONARY OEDEMA [None]
  - RESPIRATORY FAILURE [None]
  - SEPTIC SHOCK [None]
  - SHOCK [None]
